FAERS Safety Report 10415815 (Version 3)
Quarter: 2014Q4

REPORT INFORMATION
  Report Type: Spontaneous
  Country: US (occurrence: US)
  Receive Date: 20140828
  Receipt Date: 20141001
  Transmission Date: 20150528
  Serious: No
  Sender: FDA-Public Use
  Company Number: US-PFIZER INC-2014237379

PATIENT
  Age: 65 Year
  Sex: Male
  Weight: 72.56 kg

DRUGS (4)
  1. ZEGERID [Concomitant]
     Active Substance: OMEPRAZOLE\SODIUM BICARBONATE
     Dosage: 40 MG, UNK
  2. RANITIDINE [Concomitant]
     Active Substance: RANITIDINE\RANITIDINE HYDROCHLORIDE
     Dosage: 300 MG, UNK
  3. CLINDAMYCIN PHOSPHATE. [Suspect]
     Active Substance: CLINDAMYCIN PHOSPHATE
     Indication: PRURITUS
     Dosage: UNK
     Route: 061
  4. COLESTIPOL [Concomitant]
     Active Substance: COLESTIPOL
     Dosage: 1 G, 2X/DAY

REACTIONS (1)
  - Drug ineffective [Unknown]
